FAERS Safety Report 21933180 (Version 6)
Quarter: 2024Q1

REPORT INFORMATION
  Report Type: Report from Study
  Country: US (occurrence: US)
  Receive Date: 20230131
  Receipt Date: 20240108
  Transmission Date: 20240410
  Serious: Yes (Other)
  Sender: FDA-Public Use
  Company Number: US-ABBVIE-4286754

PATIENT
  Sex: Female

DRUGS (1)
  1. IMBRUVICA [Suspect]
     Active Substance: IBRUTINIB
     Indication: Non-Hodgkin^s lymphoma
     Route: 048

REACTIONS (7)
  - Systemic lupus erythematosus [Unknown]
  - Pain [Unknown]
  - Myalgia [Unknown]
  - Diabetes mellitus [Unknown]
  - Muscle spasms [Unknown]
  - Neck pain [Unknown]
  - Fatigue [Unknown]
